FAERS Safety Report 4289774-0 (Version None)
Quarter: 2004Q1

REPORT INFORMATION
  Report Type: 
  Country: None (occurrence: None)
  Receive Date: 20040210
  Receipt Date: 20030321
  Transmission Date: 20041129
  Serious: Yes (Other)
  Sender: FDA-Public Use
  Company Number: FR-GLAXOSMITHKLINE-B0295807A

PATIENT
  Age: 58 Year
  Sex: Male
  Weight: 74 kg

DRUGS (8)
  1. LAMIVUDINE [Suspect]
     Indication: HIV INFECTION
     Dosage: 150MG TWICE PER DAY
     Route: 048
     Dates: start: 20030107, end: 20030315
  2. DIDANOSINE [Concomitant]
     Indication: HIV INFECTION
     Dosage: 400MG PER DAY
     Route: 048
     Dates: start: 20020131
  3. VIRACEPT [Concomitant]
     Indication: HIV INFECTION
     Dosage: 2500MG PER DAY
     Route: 048
     Dates: start: 20020131, end: 20030901
  4. AZADOSE [Concomitant]
     Dosage: 600MG TWO TIMES PER WEEK
     Route: 048
     Dates: start: 20020131
  5. ADIAZINE [Concomitant]
     Dosage: 2000MG PER DAY
     Route: 048
     Dates: start: 20020131
  6. MALOCIDE [Concomitant]
     Dosage: 50MG PER DAY
     Route: 048
     Dates: start: 20020131
  7. MOPRAL [Concomitant]
     Dosage: 20MG PER DAY
     Route: 048
     Dates: start: 20020131
  8. XANAX [Concomitant]
     Dosage: .25MG TWICE PER DAY
     Route: 048
     Dates: start: 20020131

REACTIONS (4)
  - CONDITION AGGRAVATED [None]
  - HEPATIC ENZYME INCREASED [None]
  - HEPATITIS B [None]
  - HEPATITIS B VIRUS [None]
